FAERS Safety Report 8591324-5 (Version None)
Quarter: 2012Q3

REPORT INFORMATION
  Report Type: 
  Country: None (occurrence: None)
  Receive Date: 20120731
  Receipt Date: 20120716
  Transmission Date: 20120928
  Serious: Yes (Life-Threatening, Hospitalization)
  Sender: FDA-Public Use
  Company Number: 2012P1051094

PATIENT
  Age: 74 Year
  Sex: Female
  Weight: 50 kg

DRUGS (5)
  1. DIGOXIN [Suspect]
     Indication: ATRIAL FIBRILLATION
     Dosage: 0.25 MG;QD
  2. DIGOXIN [Suspect]
     Indication: CARDIAC FAILURE
     Dosage: 0.25 MG;QD
  3. FURUSEMIDE (FUROSEMIDE) [Concomitant]
  4. EPLERENONE [Suspect]
     Indication: CARDIAC FAILURE
     Dosage: 25 MG;QD
  5. INSULIN [Concomitant]

REACTIONS (20)
  - LEFT VENTRICULAR HYPERTROPHY [None]
  - HYPERTROPHIC CARDIOMYOPATHY [None]
  - RHYTHM IDIOVENTRICULAR [None]
  - ELECTROCARDIOGRAM QRS COMPLEX PROLONGED [None]
  - HYPERKALAEMIA [None]
  - BLOOD UREA INCREASED [None]
  - BLOOD PRESSURE IMMEASURABLE [None]
  - TOXICITY TO VARIOUS AGENTS [None]
  - ATRIAL FIBRILLATION [None]
  - CARDIAC HYPERTROPHY [None]
  - BLOOD CREATININE INCREASED [None]
  - PULSE PRESSURE DECREASED [None]
  - HYPOALDOSTERONISM [None]
  - SYNCOPE [None]
  - HEART RATE IRREGULAR [None]
  - DEHYDRATION [None]
  - DECREASED APPETITE [None]
  - VOMITING [None]
  - VENTRICULAR TACHYCARDIA [None]
  - APPARENT LIFE THREATENING EVENT [None]
